FAERS Safety Report 6013893-1 (Version None)
Quarter: 2008Q4

REPORT INFORMATION
  Report Type: 
  Country: None (occurrence: None)
  Receive Date: 20081219
  Receipt Date: 20081029
  Transmission Date: 20090506
  Serious: No
  Sender: FDA-Public Use
  Company Number: A0749429A

PATIENT
  Age: 51 Year
  Sex: Male

DRUGS (3)
  1. ADVAIR DISKUS 250/50 [Suspect]
     Indication: ASTHMA
     Route: 055
     Dates: start: 20070901
  2. ADVAIR DISKUS 250/50 [Suspect]
     Route: 055
     Dates: start: 20060101
  3. ANTIHYPERTENSIVE [Concomitant]

REACTIONS (4)
  - COUGH [None]
  - DRUG INEFFECTIVE [None]
  - PRODUCT QUALITY ISSUE [None]
  - WHEEZING [None]
